FAERS Safety Report 9381628 (Version 2)
Quarter: 2013Q4

REPORT INFORMATION
  Report Type: Spontaneous
  Country: FI (occurrence: FI)
  Receive Date: 20130703
  Receipt Date: 20131007
  Transmission Date: 20140711
  Serious: Yes (Other)
  Sender: FDA-Public Use
  Company Number: FI-PFIZER INC-2013193707

PATIENT
  Age: 74 Year
  Sex: Female
  Weight: 50 kg

DRUGS (2)
  1. XALATAN [Suspect]
     Indication: GLAUCOMA
     Dosage: 1-2 DROPS TO THE LEFT EYE AT 3 EVENINGS PER A WEEK
     Dates: end: 20130613
  2. BETOPTIC [Concomitant]
     Indication: GLAUCOMA
     Dosage: 5MG/ML AT 1 DROP TO THE LEFT IN THE MORNING AND IN THE EVENING

REACTIONS (5)
  - Injury corneal [Not Recovered/Not Resolved]
  - Keratitis bacterial [Unknown]
  - Eye irritation [Not Recovered/Not Resolved]
  - Eye pain [Not Recovered/Not Resolved]
  - Eye pruritus [Not Recovered/Not Resolved]
